FAERS Safety Report 17132074 (Version 1)
Quarter: 2019Q4

REPORT INFORMATION
  Report Type: Spontaneous
  Country: US (occurrence: US)
  Receive Date: 20191210
  Receipt Date: 20191210
  Transmission Date: 20200122
  Serious: Yes (Other)
  Sender: FDA-Public Use
  Company Number: US-SA-2019SA337469

PATIENT
  Age: 86 Year
  Sex: Female

DRUGS (6)
  1. ATORVASTATIN [Concomitant]
     Active Substance: ATORVASTATIN
     Route: 065
  2. LOSARTAN. [Concomitant]
     Active Substance: LOSARTAN
     Route: 065
  3. TOUJEO [Suspect]
     Active Substance: INSULIN GLARGINE
     Indication: TYPE 2 DIABETES MELLITUS
     Dosage: 2 UNITS OF TOUJEO EVERY MORNING + 3-4 OR MORE UNITS EVERY EVENING, BID
     Route: 065
  4. METOPROLOL. [Concomitant]
     Active Substance: METOPROLOL
     Route: 065
  5. REPAGLINIDE. [Concomitant]
     Active Substance: REPAGLINIDE
     Route: 065
  6. ASPIRIN [ACETYLSALICYLIC ACID] [Concomitant]
     Active Substance: ASPIRIN
     Route: 065

REACTIONS (3)
  - Myocardial infarction [Unknown]
  - Inappropriate schedule of product administration [Unknown]
  - Product dose omission [Unknown]
